FAERS Safety Report 7001788-6 (Version None)
Quarter: 2010Q3

REPORT INFORMATION
  Report Type: 
  Country: None (occurrence: None)
  Receive Date: 20100920
  Receipt Date: 20071001
  Transmission Date: 20110219
  Serious: Yes (Other)
  Sender: FDA-Public Use
  Company Number: US-ASTRAZENECA-2006UW22042

PATIENT
  Age: 17891 Day
  Sex: Female
  Weight: 79.4 kg

DRUGS (11)
  1. SEROQUEL [Suspect]
     Route: 048
     Dates: start: 20040101, end: 20060101
  2. SEROQUEL [Suspect]
     Dosage: 100MG -400MG
     Route: 048
     Dates: start: 20040819
  3. ABILIFY [Concomitant]
  4. RISPERDAL [Concomitant]
  5. ZYPREXA [Concomitant]
  6. CYMBALTA [Concomitant]
  7. TENORMIN [Concomitant]
     Indication: MITRAL VALVE PROLAPSE
     Route: 048
     Dates: start: 19890101
  8. ZITHROMAX [Concomitant]
     Indication: UPPER RESPIRATORY TRACT INFECTION
     Route: 048
     Dates: start: 19980213
  9. ZOLOFT [Concomitant]
     Dosage: 100MG THREE AT NIGHT, 300MG DAILY
     Route: 048
     Dates: start: 20030402
  10. KLONOPIN [Concomitant]
     Indication: ANXIETY
     Dosage: 0.5MG ONE TWICE A DAY AS REQUIRED
     Dates: start: 20030402
  11. TRAZODONE HCL [Concomitant]
     Dosage: 100MG THREE AT NIGHT
     Route: 048
     Dates: start: 20030402

REACTIONS (3)
  - DIABETES MELLITUS [None]
  - OVERDOSE [None]
  - TYPE 2 DIABETES MELLITUS [None]
